FAERS Safety Report 9000807 (Version 1)
Quarter: 2012Q4

REPORT INFORMATION
  Report Type: Spontaneous
  Country: US (occurrence: None)
  Receive Date: 20121226
  Receipt Date: 20121226
  Transmission Date: 20130627
  Serious: Yes (Other)
  Sender: FDA-Public Use
  Company Number: DSA_61526_2012

PATIENT
  Age: 53 Year
  Sex: Female

DRUGS (4)
  1. FLUOROURACIL [Suspect]
     Indication: RECTAL CANCER METASTATIC
     Dosage: (DF)
  2. OXALIPLATIN [Suspect]
     Indication: RECTAL CANCER METASTATIC
     Dosage: (DF)
  3. FOLINIC ACID [Suspect]
     Indication: RECTAL CANCER METASTATIC
     Dosage: (DF)
  4. CETUXIMAB [Suspect]
     Indication: RECTAL CANCER METASTATIC
     Dosage: (DF)

REACTIONS (3)
  - Small intestinal obstruction [None]
  - Intestinal fistula [None]
  - Oncologic complication [None]
